FAERS Safety Report 25968040 (Version 2)
Quarter: 2025Q4

REPORT INFORMATION
  Report Type: Report from Study
  Country: US (occurrence: None)
  Receive Date: 20251028
  Receipt Date: 20251218
  Transmission Date: 20260118
  Serious: Yes (Other)
  Sender: UCB
  Company Number: US-UCBSA-2025066523

PATIENT

DRUGS (3)
  1. BRIVARACETAM [Suspect]
     Active Substance: BRIVARACETAM
     Indication: Epilepsy
     Dosage: ONE 25MG TABLET IN AM AND TWO 25MG TABLETS IN PM
     Route: 061
  2. BRIVARACETAM [Suspect]
     Active Substance: BRIVARACETAM
     Indication: Seizure
     Dosage: 50 MILLIGRAM, 2X/DAY (BID)
     Route: 061
  3. BRIVARACETAM [Suspect]
     Active Substance: BRIVARACETAM
     Dosage: 25 MG, 1 TABLET IN THE MORNING AND 2 TABLETS IN THE EVENING DAILY
     Route: 061

REACTIONS (2)
  - Seizure [Unknown]
  - Product use issue [Unknown]
